FAERS Safety Report 9143405 (Version 1)
Quarter: 2013Q1

REPORT INFORMATION
  Report Type: Spontaneous
  Country: US (occurrence: US)
  Receive Date: 20130306
  Receipt Date: 20130306
  Transmission Date: 20140127
  Serious: No
  Sender: FDA-Public Use
  Company Number: US-ENDO PHARMACEUTICALS INC.-OPER20120441

PATIENT
  Age: 54 Year
  Sex: Female

DRUGS (3)
  1. OPANA ER 20MG [Suspect]
     Indication: BACK PAIN
     Route: 048
  2. ELESTRIN [Suspect]
     Indication: PRODUCT USED FOR UNKNOWN INDICATION
     Dosage: UNKNOWN
     Route: 061
     Dates: start: 20120321, end: 201203
  3. ELESTRIN [Suspect]
     Route: 061
     Dates: start: 201203

REACTIONS (5)
  - Drug interaction [Recovering/Resolving]
  - Muscle twitching [Recovering/Resolving]
  - Somnolence [Recovering/Resolving]
  - Palpitations [Recovering/Resolving]
  - Asthenia [Recovering/Resolving]
